FAERS Safety Report 10102970 (Version 1)
Quarter: 2014Q2

REPORT INFORMATION
  Report Type: Spontaneous
  Country: US (occurrence: US)
  Receive Date: 20140424
  Receipt Date: 20140424
  Transmission Date: 20141212
  Serious: No
  Sender: FDA-Public Use
  Company Number: US-BRISTOL-MYERS SQUIBB COMPANY-20018776

PATIENT
  Age: 74 Year
  Sex: Female

DRUGS (5)
  1. ELIQUIS [Suspect]
     Dosage: ONCE DAILY
  2. LEVOTHYROXINE [Concomitant]
  3. OMEPRAZOLE [Concomitant]
  4. CARAFATE [Concomitant]
  5. TOPIRAMATE [Concomitant]

REACTIONS (2)
  - Gastrointestinal disorder [Recovering/Resolving]
  - Drug prescribing error [Unknown]
